FAERS Safety Report 10373928 (Version 1)
Quarter: 2014Q1

REPORT INFORMATION
  Report Type: Spontaneous
  Country: US (occurrence: None)
  Receive Date: 20140306
  Receipt Date: 20140306
  Transmission Date: 20141002
  Serious: Yes (Other)
  Sender: FDA-Public Use
  Company Number: 163-21880-13012630

PATIENT
  Age: 83 Year
  Sex: Female

DRUGS (3)
  1. REVLIMID (LENALIDOMIDE) (25 MILLIGRAM, CAPSULES) [Suspect]
     Indication: PLASMA CELL MYELOMA
     Route: 048
     Dates: start: 20121218
  2. ASA (ACETYLSALICYLIC ACID) [Concomitant]
  3. DEXAMETHASONE [Concomitant]

REACTIONS (3)
  - Deep vein thrombosis [None]
  - Asthenia [None]
  - Dizziness [None]
